FAERS Safety Report 4318587-6 (Version None)
Quarter: 2004Q1

REPORT INFORMATION
  Report Type: 
  Country: None (occurrence: None)
  Receive Date: 20040315
  Receipt Date: 20040227
  Transmission Date: 20041129
  Serious: Yes (Hospitalization)
  Sender: FDA-Public Use
  Company Number: L04-USA-00856-01

PATIENT
  Age: 32 Year
  Sex: Female

DRUGS (4)
  1. CITALOPRAM (CITALOPRAM HYDROBROMIDE) [Suspect]
     Indication: POSTPARTUM DEPRESSION
  2. AMOXAPINE [Suspect]
     Indication: ANTIDEPRESSANT THERAPY
  3. PERPHENAZINE [Suspect]
     Indication: ANXIETY
  4. PERPHENAZINE [Suspect]
     Indication: PROPHYLAXIS

REACTIONS (10)
  - ACUTE FEBRILE NEUTROPHILIC DERMATOSIS [None]
  - ACUTE RESPIRATORY DISTRESS SYNDROME [None]
  - BACTERIAL INFECTION [None]
  - BIOPSY SKIN ABNORMAL [None]
  - HYPOTENSION [None]
  - IMMUNOLOGY TEST ABNORMAL [None]
  - NEUTROPHIL COUNT DECREASED [None]
  - PHOTOSENSITIVITY REACTION [None]
  - PNEUMONIA [None]
  - RASH [None]
